FAERS Safety Report 16491638 (Version 1)
Quarter: 2019Q2

REPORT INFORMATION
  Report Type: Spontaneous
  Country: CA (occurrence: CA)
  Receive Date: 20190628
  Receipt Date: 20190628
  Transmission Date: 20190711
  Serious: Yes (Hospitalization)
  Sender: FDA-Public Use
  Company Number: CA-AMREGENT-20191319

PATIENT
  Age: 38 Year
  Sex: Female

DRUGS (8)
  1. INFLIXIMAB [Suspect]
     Active Substance: INFLIXIMAB
     Dosage: 5 MG
     Route: 065
  2. CIPRO [Suspect]
     Active Substance: CIPROFLOXACIN HYDROCHLORIDE
     Dosage: UNKNOWN
     Route: 065
  3. SOLU-MEDROL [Suspect]
     Active Substance: METHYLPREDNISOLONE SODIUM SUCCINATE
     Dosage: UNKNOWN
     Route: 065
  4. HUMIRA [Suspect]
     Active Substance: ADALIMUMAB
     Dosage: UNKNOWN
     Route: 058
  5. FENTANYL. [Suspect]
     Active Substance: FENTANYL
     Dosage: 100 MG
     Route: 042
  6. FLAGYL [Suspect]
     Active Substance: METRONIDAZOLE\METRONIDAZOLE HYDROCHLORIDE
     Dosage: UNKNOWN
     Route: 065
  7. MIDAZOLAM HYDROCHLORIDE. [Suspect]
     Active Substance: MIDAZOLAM HYDROCHLORIDE
     Dosage: 5 MG
     Route: 042
  8. VENOFER [Suspect]
     Active Substance: IRON SUCROSE
     Dosage: UNKNOWN
     Route: 065

REACTIONS (23)
  - Deformity [Unknown]
  - Depression [Unknown]
  - Pain [Unknown]
  - Non-consummation [Unknown]
  - C-reactive protein decreased [Unknown]
  - Fibrosis [Unknown]
  - Gastrointestinal scarring [Unknown]
  - Pyrexia [Unknown]
  - Systemic inflammatory response syndrome [Unknown]
  - Attention deficit/hyperactivity disorder [Unknown]
  - Decreased appetite [Unknown]
  - Diarrhoea [Unknown]
  - Hyperhidrosis [Unknown]
  - Gastrointestinal disorder [Unknown]
  - Abdominal pain [Unknown]
  - Crohn^s disease [Unknown]
  - Large intestinal stenosis [Unknown]
  - Pyelonephritis [Unknown]
  - Colitis [Unknown]
  - Female genital tract fistula [Unknown]
  - Frequent bowel movements [Unknown]
  - Iron deficiency anaemia [Unknown]
  - Anorectal ulcer [Unknown]
